FAERS Safety Report 6050303-2 (Version None)
Quarter: 2009Q1

REPORT INFORMATION
  Report Type: 
  Country: None (occurrence: None)
  Receive Date: 20090126
  Receipt Date: 20090112
  Transmission Date: 20090719
  Serious: Yes (Death, Other)
  Sender: FDA-Public Use
  Company Number: US-ROCHE-608447

PATIENT
  Age: 15 Year
  Sex: Female

DRUGS (6)
  1. CEFTRIAXONE SODIUM [Suspect]
     Indication: SEPSIS
     Route: 065
  2. ACETAMINOPHEN [Suspect]
     Indication: DRUG USE FOR UNKNOWN INDICATION
     Dosage: ROUTE: INGESTION. OVERDOSE
     Route: 048
  3. ACETAMINOPHEN [Suspect]
     Route: 048
  4. INSULIN [Suspect]
     Indication: DIABETIC KETOACIDOSIS
     Route: 065
  5. BICARBONATE [Suspect]
     Indication: DIABETIC KETOACIDOSIS
     Route: 065
  6. POTASSIUM CHLORIDE [Suspect]
     Indication: DIABETIC KETOACIDOSIS
     Route: 065

REACTIONS (4)
  - ACUTE HEPATIC FAILURE [None]
  - CARDIAC ARREST [None]
  - COMPLETED SUICIDE [None]
  - HAEMODYNAMIC INSTABILITY [None]
